FAERS Safety Report 4748107-3 (Version None)
Quarter: 2005Q3

REPORT INFORMATION
  Report Type: 
  Country: None (occurrence: None)
  Receive Date: 20050818
  Receipt Date: 20050527
  Transmission Date: 20060218
  Serious: Yes (Hospitalization)
  Sender: FDA-Public Use
  Company Number: US-MERCK-0506USA00369

PATIENT
  Age: 74 Year
  Sex: Female
  Weight: 60 kg

DRUGS (26)
  1. VIOXX [Suspect]
     Indication: OSTEOARTHRITIS
     Route: 048
     Dates: start: 19991115, end: 20040101
  2. METHOCARBAMOL [Concomitant]
     Route: 065
  3. PREVACID [Concomitant]
     Route: 065
  4. FOSAMAX [Concomitant]
     Route: 065
  5. ALPRAZOLAM [Concomitant]
     Route: 065
  6. ACETAMINOPHEN [Concomitant]
     Route: 065
  7. ZITHROMAX [Concomitant]
     Route: 065
  8. [THERAPY UNSPECIFIED] [Concomitant]
     Route: 065
  9. ZOCOR [Concomitant]
     Route: 065
  10. PRILOSEC [Concomitant]
     Route: 065
  11. PROPRANOLOL HYDROCHLORIDE [Concomitant]
     Route: 065
  12. ACIPHEX [Concomitant]
     Route: 065
  13. CIPROFLOXACIN HCL [Concomitant]
     Route: 065
  14. ATROPINE SULFATE AND DIPHENOXYLATE HYDROCHLORIDE [Concomitant]
     Route: 065
  15. PREDNISOLONE [Concomitant]
     Route: 065
  16. MOBIC [Concomitant]
     Route: 065
  17. ZEBUTAL [Concomitant]
     Route: 065
  18. QUININE SULFATE [Concomitant]
     Route: 065
  19. DIPHENHYDRAMINE HYDROCHLORIDE [Concomitant]
     Route: 065
  20. TEQUIN [Concomitant]
     Route: 065
  21. ASPIRIN [Concomitant]
     Route: 065
  22. TYLENOL [Concomitant]
     Route: 065
  23. NAPROSYN [Concomitant]
     Route: 065
     Dates: start: 19990301, end: 20040401
  24. BEXTRA [Concomitant]
     Route: 065
     Dates: start: 19990301, end: 20040401
  25. CELEBREX [Concomitant]
     Route: 065
     Dates: start: 19990301, end: 20040401
  26. XANAX [Concomitant]
     Route: 065
     Dates: start: 19850101

REACTIONS (5)
  - ACUTE MYOCARDIAL INFARCTION [None]
  - BLOOD CHOLESTEROL INCREASED [None]
  - CARDIAC DISORDER [None]
  - HEART RATE IRREGULAR [None]
  - HYPERTENSION [None]
